FAERS Safety Report 7435636-7 (Version None)
Quarter: 2011Q2

REPORT INFORMATION
  Report Type: 
  Country: None (occurrence: None)
  Receive Date: 20110425
  Receipt Date: 20110315
  Transmission Date: 20111010
  Serious: No
  Sender: FDA-Public Use
  Company Number: US-MYLANLABS-2011S1005690

PATIENT
  Sex: Female

DRUGS (3)
  1. CLONIDINE [Suspect]
     Dosage: Q2D
     Route: 062
     Dates: start: 20110201, end: 20110201
  2. CLONIDINE [Suspect]
     Dosage: QOD
     Route: 062
     Dates: start: 20110301
  3. CLONIDINE [Suspect]
     Indication: BLOOD PRESSURE INCREASED
     Dosage: QW
     Route: 062
     Dates: start: 20110201, end: 20110201

REACTIONS (2)
  - APPLICATION SITE PRURITUS [None]
  - APPLICATION SITE ERYTHEMA [None]
